FAERS Safety Report 6974292-9 (Version None)
Quarter: 2010Q3

REPORT INFORMATION
  Report Type: 
  Country: None (occurrence: None)
  Receive Date: 20100909
  Receipt Date: 20080303
  Transmission Date: 20110219
  Serious: No
  Sender: FDA-Public Use
  Company Number: US-WYE-H02947108

PATIENT
  Sex: Female
  Weight: 75.82 kg

DRUGS (8)
  1. PROTONIX [Suspect]
     Indication: GASTROOESOPHAGEAL REFLUX DISEASE
     Route: 048
     Dates: start: 20070901
  2. ALTACE [Concomitant]
  3. CYMBALTA [Concomitant]
  4. HYDROCODONE [Concomitant]
  5. NORVASC [Concomitant]
  6. LASIX [Concomitant]
  7. ACETYLSALICYLIC ACID [Concomitant]
  8. BENICAR [Concomitant]

REACTIONS (4)
  - ASPIRATION [None]
  - CHOKING [None]
  - COUGH [None]
  - DRUG EFFECT DECREASED [None]
